FAERS Safety Report 9570943 (Version 5)
Quarter: 2013Q4

REPORT INFORMATION
  Report Type: Spontaneous
  Country: US (occurrence: None)
  Receive Date: 20130927
  Receipt Date: 20131121
  Transmission Date: 20140711
  Serious: Yes (Hospitalization)
  Sender: FDA-Public Use
  Company Number: AUR-APL-2013-08035

PATIENT
  Age: 68 Year
  Sex: Male
  Weight: 98.87 kg

DRUGS (19)
  1. HYDROCHLOROTHIAZIDE [Suspect]
     Indication: HYPERTENSION
     Route: 048
     Dates: start: 20130715, end: 20130725
  2. NEXIUM (ESOMEPRAZOLE MAGNESIUM) [Concomitant]
  3. GABAPENTIN (GABAPENTIN) [Concomitant]
  4. FLUTICASONE (FLUTICASONE) [Concomitant]
  5. VICODIN (VICODIN) [Concomitant]
  6. MAGNESIUM (MAGNESIUM) [Concomitant]
  7. ASPIRIN (ACETYLSALICYIC ACID) [Concomitant]
  8. NIACIN (NICOTINIC ACID) [Concomitant]
  9. COREG (CARVEDILOL) [Concomitant]
  10. FUROSEMIDE (FUROSEMIDE) [Concomitant]
  11. DIGOXIN (DIGOXIN) [Concomitant]
  12. FLONASE (FLUTICASONE PROPIONATE) [Concomitant]
  13. SIMVASTATIN (SIMVASTATIN) [Concomitant]
  14. VENTOLIN (SALBUTAMOL) [Concomitant]
  15. LORATIDINE [Concomitant]
  16. FLOVENT (FLUTICASONE PROPIONATE) [Concomitant]
  17. LASIX (FUROSEMIDE) [Concomitant]
  18. MULTIVITAMIN (VIGRAN) [Concomitant]
  19. PERCOCET (TYLOX /00446701/) [Concomitant]

REACTIONS (5)
  - Dehydration [None]
  - Renal failure [None]
  - Atrioventricular block first degree [None]
  - Urinary tract infection [None]
  - Hypokalaemia [None]
